FAERS Safety Report 14432608 (Version 14)
Quarter: 2021Q2

REPORT INFORMATION
  Report Type: Spontaneous
  Country: CA (occurrence: CA)
  Receive Date: 20180124
  Receipt Date: 20210422
  Transmission Date: 20210716
  Serious: Yes (Other)
  Sender: FDA-Public Use
  Company Number: CA-CELLTRION INC.-2017CA013325

PATIENT

DRUGS (13)
  1. INFLECTRA [Suspect]
     Active Substance: INFLIXIMAB-DYYB
     Dosage: 600 MG (EVERY 8 WEEKS MAINTENANCE)
     Route: 042
     Dates: start: 20180201
  2. INFLECTRA [Suspect]
     Active Substance: INFLIXIMAB-DYYB
     Indication: PSORIATIC ARTHROPATHY
     Dosage: 600 MG (EVERY 8 WEEKS MAINTENANCE)
     Route: 042
     Dates: start: 20160509, end: 20171120
  3. METFORMIN [Concomitant]
     Active Substance: METFORMIN HYDROCHLORIDE
     Dosage: UNK
     Route: 065
  4. INFLECTRA [Suspect]
     Active Substance: INFLIXIMAB-DYYB
     Dosage: 5 MG/KG, EVERY 7 WEEKS
     Route: 042
     Dates: start: 20181009
  5. INFLECTRA [Suspect]
     Active Substance: INFLIXIMAB-DYYB
     Dosage: 5 MG/KG, EVERY 7 WEEKS
     Route: 042
     Dates: start: 20200917, end: 20200917
  6. INFLECTRA [Suspect]
     Active Substance: INFLIXIMAB-DYYB
     Dosage: 550 MG, UNK
     Route: 042
     Dates: start: 20180821
  7. INFLECTRA [Suspect]
     Active Substance: INFLIXIMAB-DYYB
     Dosage: 5 MG/KG, EVERY 7 WEEKS
     Route: 042
     Dates: start: 20190610
  8. INFLECTRA [Suspect]
     Active Substance: INFLIXIMAB-DYYB
     Dosage: 525 MG, UNK
     Route: 042
     Dates: start: 20181126
  9. INFLECTRA [Suspect]
     Active Substance: INFLIXIMAB-DYYB
     Dosage: 600 MG, Q (EVERY) 0, 2, 6 WEEKS, THEN EVERY 8 WEEKS
     Route: 042
     Dates: start: 20160509, end: 20180201
  10. INFLECTRA [Suspect]
     Active Substance: INFLIXIMAB-DYYB
     Dosage: 5 MG/KG, EVERY 7 WEEKS
     Route: 042
  11. INFLECTRA [Suspect]
     Active Substance: INFLIXIMAB-DYYB
     Dosage: 5 MG/KG, EVERY 7 WEEKS
     Route: 042
     Dates: start: 20210413
  12. INFLECTRA [Suspect]
     Active Substance: INFLIXIMAB-DYYB
     Dosage: 5 MG/KG, EVERY 7 WEEKS
     Route: 042
     Dates: start: 20200203
  13. INFLECTRA [Suspect]
     Active Substance: INFLIXIMAB-DYYB
     Dosage: 5 MG/KG, EVERY 7 WEEKS
     Route: 042
     Dates: start: 20200420

REACTIONS (14)
  - Weight increased [Unknown]
  - Off label use [Unknown]
  - Incorrect dose administered [Unknown]
  - Erythema [Recovering/Resolving]
  - Inappropriate schedule of product administration [Unknown]
  - Deep vein thrombosis [Not Recovered/Not Resolved]
  - Weight decreased [Unknown]
  - Rash [Not Recovered/Not Resolved]
  - Skin exfoliation [Recovering/Resolving]
  - Axillary mass [Not Recovered/Not Resolved]
  - Cough [Unknown]
  - Oedema peripheral [Recovering/Resolving]
  - Localised infection [Recovered/Resolved]
  - Pain in extremity [Recovering/Resolving]

NARRATIVE: CASE EVENT DATE: 20170923
